FAERS Safety Report 9460152 (Version 1)
Quarter: 2013Q3

REPORT INFORMATION
  Report Type: Spontaneous
  Country: US (occurrence: None)
  Receive Date: 20130814
  Receipt Date: 20130814
  Transmission Date: 20140515
  Serious: No
  Sender: FDA-Public Use
  Company Number: None

PATIENT
  Age: 62 Year
  Sex: Female

DRUGS (2)
  1. ENBREL SURECLICK 50MG/ML AMGEN [Suspect]
     Indication: PSORIASIS
     Dates: start: 20130724
  2. ENBREL SURECLICK 50MG/ML AMGEN [Suspect]
     Dates: start: 20130724

REACTIONS (1)
  - Palpitations [None]
